FAERS Safety Report 15306851 (Version 1)
Quarter: 2018Q3

REPORT INFORMATION
  Report Type: Report from Study
  Country: BR (occurrence: BR)
  Receive Date: 20180822
  Receipt Date: 20180822
  Transmission Date: 20181010
  Serious: Yes (Other)
  Sender: FDA-Public Use
  Company Number: PHHY2018BR022633

PATIENT
  Age: 85 Year
  Sex: Female
  Weight: 54 kg

DRUGS (2)
  1. ACLASTA [Suspect]
     Active Substance: ZOLEDRONIC ACID
     Dosage: 1 DF, Q12MO
     Route: 042
     Dates: start: 20161004, end: 20161004
  2. ACLASTA [Suspect]
     Active Substance: ZOLEDRONIC ACID
     Indication: OSTEOPOROSIS
     Dosage: 1 DF(5MG/100ML), Q12MO
     Route: 042
     Dates: start: 20150924

REACTIONS (17)
  - Gait disturbance [Not Recovered/Not Resolved]
  - Erysipelas [Recovering/Resolving]
  - Patella fracture [Recovered/Resolved with Sequelae]
  - Skin discolouration [Not Recovered/Not Resolved]
  - Burning sensation [Recovered/Resolved]
  - Hypoacusis [Unknown]
  - Malaise [Unknown]
  - Pyrexia [Unknown]
  - Dislocation of vertebra [Recovered/Resolved with Sequelae]
  - Spinal pain [Unknown]
  - Weight decreased [Unknown]
  - Pain in extremity [Not Recovered/Not Resolved]
  - Visual impairment [Unknown]
  - Erythema [Recovered/Resolved]
  - Joint dislocation [Not Recovered/Not Resolved]
  - Fall [Not Recovered/Not Resolved]
  - Nervousness [Unknown]

NARRATIVE: CASE EVENT DATE: 2017
